FAERS Safety Report 6120508-0 (Version None)
Quarter: 2009Q1

REPORT INFORMATION
  Report Type: 
  Country: None (occurrence: None)
  Receive Date: 20090317
  Receipt Date: 20090310
  Transmission Date: 20090719
  Serious: Yes (Hospitalization, Other)
  Sender: FDA-Public Use
  Company Number: US-KINGPHARMUSA00001-K200900208

PATIENT
  Sex: Male
  Weight: 99.773 kg

DRUGS (6)
  1. ALTACE [Suspect]
     Dosage: 1.25 MG, QD
  2. ALTACE [Suspect]
     Dosage: 5 MG, QD
  3. ALTACE [Suspect]
     Dosage: 10 MG, QD
  4. LIPITOR [Concomitant]
     Dosage: UNK
  5. TRICOR [Concomitant]
     Dosage: UNK
  6. VITAMINS NOS [Concomitant]
     Dosage: UNK

REACTIONS (3)
  - DEEP VEIN THROMBOSIS [None]
  - DIABETES MELLITUS [None]
  - PULMONARY EMBOLISM [None]
